FAERS Safety Report 5645888-1 (Version None)
Quarter: 2008Q1

REPORT INFORMATION
  Report Type: 
  Country: None (occurrence: None)
  Receive Date: 20080229
  Receipt Date: 20080219
  Transmission Date: 20080703
  Serious: Yes (Other)
  Sender: FDA-Public Use
  Company Number: FR-PFIZER INC-2008008024

PATIENT
  Sex: Male
  Weight: 75 kg

DRUGS (3)
  1. CHANTIX [Suspect]
     Indication: SMOKING CESSATION THERAPY
     Route: 048
     Dates: start: 20071109, end: 20071116
  2. XATRAL [Concomitant]
     Indication: BENIGN PROSTATIC HYPERPLASIA
     Dosage: DAILY DOSE:10MG
     Route: 048
  3. ANALGESIC COMBINATION [Concomitant]
     Indication: ARTHRALGIA
     Route: 048
     Dates: start: 20071001

REACTIONS (3)
  - ANXIETY [None]
  - DEPRESSED MOOD [None]
  - DEPRESSION [None]
